FAERS Safety Report 4373300-1 (Version None)
Quarter: 2004Q2

REPORT INFORMATION
  Report Type: 
  Country: None (occurrence: None)
  Receive Date: 20040603
  Receipt Date: 20040513
  Transmission Date: 20050107
  Serious: Yes (Hospitalization, Other)
  Sender: FDA-Public Use
  Company Number: USA040567388

PATIENT
  Age: 59 Year
  Sex: Female

DRUGS (1)
  1. HUMALOG-HUMAN INSULIN(RDNA)25% LISPRO, 75% NPL(LI [Suspect]
     Dosage: 66 U DAY

REACTIONS (9)
  - BLOOD GLUCOSE DECREASED [None]
  - FEELING ABNORMAL [None]
  - INJECTION SITE DISCOLOURATION [None]
  - INJECTION SITE HAEMORRHAGE [None]
  - INJECTION SITE MASS [None]
  - LIVER TRANSPLANT [None]
  - MEDICATION ERROR [None]
  - PHARMACEUTICAL PRODUCT COMPLAINT [None]
  - RENAL DISORDER [None]
